FAERS Safety Report 5035442-7 (Version None)
Quarter: 2006Q2

REPORT INFORMATION
  Report Type: 
  Country: None (occurrence: None)
  Receive Date: 20060622
  Receipt Date: 20060531
  Transmission Date: 20061013
  Serious: Yes (Other)
  Sender: FDA-Public Use
  Company Number: 2006RR-02595

PATIENT
  Age: 25 Year
  Sex: Male

DRUGS (3)
  1. DOXYCYCLINE [Suspect]
     Indication: ACNE
     Dosage: 200 MG,
  2. MINOCYCLINE HYDROCHLORIDE [Suspect]
     Dosage: SEE IMAGE
  3. TETRACYCLINE [Suspect]
     Indication: ACNE
     Dosage: 1000 MG,

REACTIONS (2)
  - ACUTE FEBRILE NEUTROPHILIC DERMATOSIS [None]
  - SELF-MEDICATION [None]
